FAERS Safety Report 4916313-0 (Version None)
Quarter: 2006Q1

REPORT INFORMATION
  Report Type: 
  Country: None (occurrence: None)
  Receive Date: 20060113
  Receipt Date: 20050926
  Transmission Date: 20060701
  Serious: No
  Sender: FDA-Public Use
  Company Number: 2005SP003209

PATIENT
  Age: 84 Year
  Sex: Male

DRUGS (7)
  1. LUNESTA [Suspect]
     Indication: INSOMNIA
     Dosage: ORAL
     Route: 048
     Dates: start: 20050801, end: 20050801
  2. ARICEPT [Concomitant]
  3. REQUIP [Concomitant]
  4. TRAMADOL HCL [Concomitant]
  5. HYDROCODONE [Concomitant]
  6. CALCIUM GLUCONATE [Concomitant]
  7. AMBIEN [Concomitant]

REACTIONS (3)
  - INITIAL INSOMNIA [None]
  - PRURITUS [None]
  - RASH [None]
